FAERS Safety Report 8052331-4 (Version None)
Quarter: 2012Q1

REPORT INFORMATION
  Report Type: 
  Country: None (occurrence: None)
  Receive Date: 20120118
  Receipt Date: 20120116
  Transmission Date: 20120608
  Serious: No
  Sender: FDA-Public Use
  Company Number: US-BAYER-2012-004927

PATIENT
  Sex: Female

DRUGS (2)
  1. NATAZIA [Suspect]
     Dosage: QD
     Route: 048
     Dates: start: 20110601
  2. ST. JOHNS WORT [Concomitant]
     Dosage: UNK
     Dates: start: 20110101

REACTIONS (1)
  - METRORRHAGIA [None]
